FAERS Safety Report 23138105 (Version 2)
Quarter: 2023Q4

REPORT INFORMATION
  Report Type: Spontaneous
  Country: NL (occurrence: None)
  Receive Date: 20231102
  Receipt Date: 20231114
  Transmission Date: 20240109
  Serious: Yes (Hospitalization, Other)
  Sender: FDA-Public Use
  Company Number: NL-Unichem Pharmaceuticals (USA) Inc-UCM202310-001321

PATIENT
  Age: 86 Year
  Sex: Male

DRUGS (8)
  1. AMIODARONE HYDROCHLORIDE [Suspect]
     Active Substance: AMIODARONE HYDROCHLORIDE
     Indication: Ventricular tachycardia
     Dates: start: 202105, end: 202204
  2. AMIODARONE HYDROCHLORIDE [Suspect]
     Active Substance: AMIODARONE HYDROCHLORIDE
  3. AMIODARONE HYDROCHLORIDE [Suspect]
     Active Substance: AMIODARONE HYDROCHLORIDE
  4. METOPROLOL [Concomitant]
     Active Substance: METOPROLOL
     Indication: Ventricular tachycardia
     Dosage: UNKNOWN
  5. EPLERENONE [Concomitant]
     Active Substance: EPLERENONE
     Indication: Proteinuria
     Dosage: UNKNOWN
  6. QUINAPRIL [Concomitant]
     Active Substance: QUINAPRIL
     Indication: Product used for unknown indication
     Dosage: UNKNOWN
  7. PERINDOPRIL [Concomitant]
     Active Substance: PERINDOPRIL
     Indication: Product used for unknown indication
     Dosage: UNKNOWN
  8. BUMETANIDE [Concomitant]
     Active Substance: BUMETANIDE
     Indication: Product used for unknown indication
     Dosage: UNKNOWN

REACTIONS (4)
  - Renal phospholipidosis [Recovered/Resolved]
  - Cornea verticillata [Unknown]
  - Nephropathy toxic [Recovering/Resolving]
  - Acute kidney injury [Recovering/Resolving]
